FAERS Safety Report 20185789 (Version 1)
Quarter: 2021Q4

REPORT INFORMATION
  Report Type: Spontaneous
  Country: JP (occurrence: JP)
  Receive Date: 20211215
  Receipt Date: 20211215
  Transmission Date: 20220303
  Serious: Yes (Hospitalization)
  Sender: FDA-Public Use
  Company Number: JP-LEO Pharma-338982

PATIENT
  Age: 61 Year

DRUGS (6)
  1. BETAMETHASONE\CALCIPOTRIENE [Suspect]
     Active Substance: BETAMETHASONE\CALCIPOTRIENE
     Indication: Product used for unknown indication
     Route: 061
  2. Gluconic acid fine granules [Concomitant]
     Indication: Product used for unknown indication
  3. Lansoprasol [Concomitant]
     Indication: Product used for unknown indication
  4. Elicus [Concomitant]
     Indication: Product used for unknown indication
  5. CARVEDILOL [Concomitant]
     Active Substance: CARVEDILOL
     Indication: Product used for unknown indication
  6. Celara (eplerenone) [Concomitant]
     Indication: Product used for unknown indication

REACTIONS (2)
  - Cerebral haemorrhage [Recovering/Resolving]
  - Inappropriate schedule of product administration [Unknown]
